FAERS Safety Report 19680930 (Version 1)
Quarter: 2021Q3

REPORT INFORMATION
  Report Type: Spontaneous
  Country: US (occurrence: US)
  Receive Date: 20210810
  Receipt Date: 20210810
  Transmission Date: 20211014
  Serious: No
  Sender: FDA-Public Use
  Company Number: US-JNJFOC-20210740867

PATIENT
  Sex: Female

DRUGS (2)
  1. SPRAVATO [Suspect]
     Active Substance: ESKETAMINE
     Indication: MAJOR DEPRESSION
  2. KETAMINE [Suspect]
     Active Substance: KETAMINE
     Indication: PAIN MANAGEMENT

REACTIONS (1)
  - Product administration error [Unknown]
